FAERS Safety Report 9331036 (Version 1)
Quarter: 2013Q2

REPORT INFORMATION
  Report Type: Spontaneous
  Country: ES (occurrence: ES)
  Receive Date: 20130605
  Receipt Date: 20130605
  Transmission Date: 20140414
  Serious: Yes (Life-Threatening, Hospitalization)
  Sender: FDA-Public Use
  Company Number: ES-JNJFOC-20130522009

PATIENT
  Age: 79 Year
  Sex: Female

DRUGS (4)
  1. IBUPROFEN [Suspect]
     Indication: PRODUCT USED FOR UNKNOWN INDICATION
     Route: 048
     Dates: start: 201302, end: 201303
  2. SEGURIL [Interacting]
     Indication: PULMONARY HYPERTENSION
     Route: 048
     Dates: end: 20130314
  3. ENALAPRIL [Interacting]
     Indication: PULMONARY HYPERTENSION
     Route: 048
     Dates: start: 201103, end: 20130314
  4. ALDACTONE [Interacting]
     Indication: HEPATIC CIRRHOSIS
     Route: 048
     Dates: start: 201207, end: 20130314

REACTIONS (4)
  - Drug interaction [Recovering/Resolving]
  - Renal failure chronic [Recovering/Resolving]
  - Hyperkalaemia [Recovering/Resolving]
  - Hyponatraemia [Recovering/Resolving]
